FAERS Safety Report 6920679-X (Version None)
Quarter: 2010Q3

REPORT INFORMATION
  Report Type: 
  Country: None (occurrence: None)
  Receive Date: 20100812
  Receipt Date: 20100729
  Transmission Date: 20110219
  Serious: Yes (Other)
  Sender: FDA-Public Use
  Company Number: US-ELI_LILLY_AND_COMPANY-US201008000079

PATIENT
  Sex: Female

DRUGS (2)
  1. EVISTA [Suspect]
     Indication: OSTEOPOROSIS
  2. FOSAMAX [Concomitant]
     Indication: OSTEOPOROSIS

REACTIONS (3)
  - FEMUR FRACTURE [None]
  - FLANK PAIN [None]
  - RIB FRACTURE [None]
